FAERS Safety Report 25520739 (Version 1)
Quarter: 2025Q3

REPORT INFORMATION
  Report Type: Spontaneous
  Country: CN (occurrence: CN)
  Receive Date: 20250705
  Receipt Date: 20250705
  Transmission Date: 20251020
  Serious: Yes (Other)
  Sender: VKT PHARMA PRIVATE LIMITED
  Company Number: CN-VKT-000669

PATIENT
  Age: 4 Year
  Sex: Female

DRUGS (1)
  1. LEVETIRACETAM [Suspect]
     Active Substance: LEVETIRACETAM
     Indication: Seizure
     Route: 064
     Dates: start: 201608, end: 201806

REACTIONS (4)
  - Seizure cluster [Recovered/Resolved]
  - Myoclonic epilepsy [Recovered/Resolved]
  - Therapy non-responder [Recovered/Resolved]
  - Foetal exposure during pregnancy [Recovered/Resolved]

NARRATIVE: CASE EVENT DATE: 20160801
